FAERS Safety Report 15798244 (Version 2)
Quarter: 2019Q1

REPORT INFORMATION
  Report Type: Report from Study
  Country: US (occurrence: US)
  Receive Date: 20190108
  Receipt Date: 20190206
  Transmission Date: 20190417
  Serious: Yes (Hospitalization)
  Sender: FDA-Public Use
  Company Number: US-ASTELLAS-2018US043942

PATIENT
  Sex: Female

DRUGS (2)
  1. ISAVUCONAZOLE [Suspect]
     Active Substance: ISAVUCONAZOLE
     Indication: ASPERGILLUS INFECTION
     Dosage: 372 MG (2 DF), ONCE DAILY
     Route: 048
     Dates: start: 20181009
  2. ISAVUCONAZOLE [Suspect]
     Active Substance: ISAVUCONAZOLE
     Indication: MUCORMYCOSIS

REACTIONS (3)
  - Sialoadenitis [Not Recovered/Not Resolved]
  - Fungal infection [Unknown]
  - Salivary duct obstruction [Not Recovered/Not Resolved]
